FAERS Safety Report 12957171 (Version 1)
Quarter: 2016Q4

REPORT INFORMATION
  Report Type: Other
  Country: US (occurrence: US)
  Receive Date: 20161118
  Receipt Date: 20161118
  Transmission Date: 20170207
  Serious: No
  Sender: FDA-Public Use
  Company Number: US-BELCHER PHARMACEUTICALS, LLC-2016VTS00229

PATIENT
  Age: 49 Year
  Sex: Female
  Weight: 87.53 kg

DRUGS (3)
  1. HYOSCYAMINE SULFATE SL [Suspect]
     Active Substance: HYOSCYAMINE SULFATE
     Indication: OESOPHAGEAL SPASM
     Dosage: 0.125 MG, AS NEEDED
     Route: 060
     Dates: start: 20160718, end: 20160925
  2. OMEPRAZOLE. [Concomitant]
     Active Substance: OMEPRAZOLE
     Dosage: UNK, 1X/DAY
     Dates: start: 2015
  3. RANITIDINE. [Concomitant]
     Active Substance: RANITIDINE
     Dosage: 150 MG, AS NEEDED

REACTIONS (13)
  - Hallucination [Recovered/Resolved]
  - Dizziness [Recovered/Resolved]
  - Urinary retention [Recovered/Resolved]
  - Dry mouth [Recovered/Resolved]
  - Urinary incontinence [Recovered/Resolved]
  - Anxiety [Recovered/Resolved]
  - Aura [Recovered/Resolved]
  - Micturition urgency [Recovered/Resolved]
  - Pollakiuria [Recovered/Resolved]
  - Confusional state [Recovered/Resolved]
  - Urinary hesitation [Recovered/Resolved]
  - Emotional distress [Recovered/Resolved]
  - Vision blurred [Recovered/Resolved]

NARRATIVE: CASE EVENT DATE: 201607
